FAERS Safety Report 13346476 (Version 1)
Quarter: 2017Q1

REPORT INFORMATION
  Report Type: Report from Study
  Country: None (occurrence: BR)
  Receive Date: 20170317
  Receipt Date: 20170317
  Transmission Date: 20170428
  Serious: Yes (Hospitalization)
  Sender: FDA-Public Use
  Company Number: BR-ABBVIE-17P-020-1908018-00

PATIENT
  Sex: Male
  Weight: 56 kg

DRUGS (2)
  1. SINERGEN [Concomitant]
     Indication: HYPERTENSION
     Dosage: FORM STRENGTH: AMLODIPINE 2.5MG /ENALAPRIL 10MG
     Route: 048
     Dates: start: 2005
  2. HUMIRA [Suspect]
     Active Substance: ADALIMUMAB
     Indication: CROHN^S DISEASE
     Route: 058
     Dates: start: 20140601

REACTIONS (6)
  - Intestinal obstruction [Unknown]
  - Abdominal pain [Unknown]
  - Hiccups [Unknown]
  - Inflammation [Unknown]
  - Enteritis infectious [Recovered/Resolved]
  - Flatulence [Unknown]

NARRATIVE: CASE EVENT DATE: 2017
